FAERS Safety Report 7826096-2 (Version None)
Quarter: 2011Q4

REPORT INFORMATION
  Report Type: 
  Country: None (occurrence: None)
  Receive Date: 20111019
  Receipt Date: 20111010
  Transmission Date: 20120403
  Serious: Yes (Other)
  Sender: FDA-Public Use
  Company Number: US-ASTRAZENECA-2011SE57945

PATIENT
  Age: 52 Year
  Sex: Male

DRUGS (1)
  1. SEROQUEL [Suspect]
     Route: 048

REACTIONS (5)
  - SPINAL CORD INJURY [None]
  - JAW DISORDER [None]
  - TOOTH EXTRACTION [None]
  - ROAD TRAFFIC ACCIDENT [None]
  - TOOTH EROSION [None]
